FAERS Safety Report 15505612 (Version 1)
Quarter: 2018Q4

REPORT INFORMATION
  Report Type: Spontaneous
  Country: US (occurrence: US)
  Receive Date: 20181010
  Receipt Date: 20181010
  Transmission Date: 20190205
  Serious: Yes (Life-Threatening, Hospitalization, Disabling, Other)
  Sender: FDA-Public Use
  Company Number: None

PATIENT
  Age: 53 Year
  Sex: Male
  Weight: 83.91 kg

DRUGS (22)
  1. DESCOVY [Concomitant]
     Active Substance: EMTRICITABINE\TENOFOVIR ALAFENAMIDE FUMARATE
  2. FOSAMAX [Concomitant]
     Active Substance: ALENDRONATE SODIUM
  3. LACTOBACILLUS ACIDOPHILUS\LACTOBACILLUS BULGARICUS [Concomitant]
     Active Substance: LACTOBACILLUS ACIDOPHILUS\LACTOBACILLUS DELBRUECKII SUBSP. BULGARICUS
  4. GABAPENTIN. [Concomitant]
     Active Substance: GABAPENTIN
  5. KEPPRA [Concomitant]
     Active Substance: LEVETIRACETAM
  6. NEURONTIN [Suspect]
     Active Substance: GABAPENTIN
     Indication: EPILEPSY
     Dosage: ?          QUANTITY:2 CAPS;?
     Route: 048
     Dates: start: 20180822
  7. TRAMADOL. [Concomitant]
     Active Substance: TRAMADOL
  8. NAPROXEN. [Concomitant]
     Active Substance: NAPROXEN
  9. PROPRAZONAL [Concomitant]
  10. LOPERAMIDE (OTC) [Concomitant]
  11. BENADRYL [Concomitant]
     Active Substance: DIPHENHYDRAMINE HYDROCHLORIDE
  12. VIMPAT [Concomitant]
     Active Substance: LACOSAMIDE
  13. ROZEREM [Concomitant]
     Active Substance: RAMELTEON
  14. BUPROPION. [Concomitant]
     Active Substance: BUPROPION
  15. TAMSULOSIN [Concomitant]
     Active Substance: TAMSULOSIN
  16. TYLENOL [Concomitant]
     Active Substance: ACETAMINOPHEN
  17. TIVICAY [Concomitant]
     Active Substance: DOLUTEGRAVIR SODIUM
  18. VITAMIN C [Concomitant]
     Active Substance: ASCORBIC ACID
  19. NEURONTIN [Suspect]
     Active Substance: GABAPENTIN
     Indication: NEUROPATHY PERIPHERAL
     Dosage: ?          QUANTITY:2 CAPS;?
     Route: 048
     Dates: start: 20180822
  20. DIAZEPAM. [Concomitant]
     Active Substance: DIAZEPAM
  21. CALCIUM+V-D [Concomitant]
  22. MULTI VITAMIN/MINERAL [Concomitant]
     Active Substance: MINERALS\VITAMINS

REACTIONS (20)
  - Acute respiratory failure [None]
  - Rash [None]
  - Diplopia [None]
  - Hypokalaemia [None]
  - Pain [None]
  - Coordination abnormal [None]
  - Joint swelling [None]
  - Nausea [None]
  - Fatigue [None]
  - Dizziness [None]
  - Insomnia [None]
  - Sepsis [None]
  - Decreased appetite [None]
  - Contusion [None]
  - Status epilepticus [None]
  - Neuropathy peripheral [None]
  - Vision blurred [None]
  - Haemorrhage [None]
  - Hypocalcaemia [None]
  - Peripheral swelling [None]
